FAERS Safety Report 9392160 (Version 1)
Quarter: 2013Q3

REPORT INFORMATION
  Report Type: Spontaneous
  Country: US (occurrence: US)
  Receive Date: 20130710
  Receipt Date: 20130710
  Transmission Date: 20140515
  Serious: No
  Sender: FDA-Public Use
  Company Number: US-009507513-1307USA001415

PATIENT
  Age: 35 Year
  Sex: Female

DRUGS (1)
  1. AZASITE [Suspect]
     Indication: BLEPHARITIS
     Dosage: ONE DROP IN EACH EYE TWICE A DAY FOR 11 DAYS
     Route: 047
     Dates: start: 20130629

REACTIONS (3)
  - Incorrect drug administration duration [Unknown]
  - Product packaging quantity issue [Unknown]
  - No adverse event [Unknown]
